FAERS Safety Report 7030530 (Version 3)
Quarter: 2014Q3

REPORT INFORMATION
  Report Type: Spontaneous
  Country: US (occurrence: US)
  Receive Date: 20090623
  Receipt Date: 20140812
  Transmission Date: 20150326
  Serious: No
  Sender: FDA-Public Use
  Company Number: US-ASTRAZENECA-2008UW12193

PATIENT
  Age: 79 Year
  Sex: Male
  Weight: 54.4 kg

DRUGS (10)
  1. PULMICORT FLEXHALER [Suspect]
     Active Substance: BUDESONIDE
     Indication: ASTHMA
     Dosage: 180 UG TWO PUFFS TWO TIMES A DAY
     Route: 055
  2. VENTOLIN [Concomitant]
     Active Substance: ALBUTEROL SULFATE
     Indication: INHALATION THERAPY
     Route: 055
  3. PULMICORT FLEXHALER [Suspect]
     Active Substance: BUDESONIDE
     Indication: CHRONIC OBSTRUCTIVE PULMONARY DISEASE
     Route: 055
  4. SYMBICORT [Suspect]
     Active Substance: BUDESONIDE\FORMOTEROL FUMARATE DIHYDRATE
     Route: 055
  5. FLOVENT [Concomitant]
     Active Substance: FLUTICASONE PROPIONATE
     Indication: ASTHMA
     Route: 055
  6. FLOVENT [Concomitant]
     Active Substance: FLUTICASONE PROPIONATE
     Indication: CHRONIC OBSTRUCTIVE PULMONARY DISEASE
     Route: 055
  7. PULMICORT FLEXHALER [Suspect]
     Active Substance: BUDESONIDE
     Indication: CHRONIC OBSTRUCTIVE PULMONARY DISEASE
     Dosage: 180 UG TWO PUFFS TWO TIMES A DAY
     Route: 055
  8. PREDNISONE. [Concomitant]
     Active Substance: PREDNISONE
  9. NYSTATIN. [Concomitant]
     Active Substance: NYSTATIN
  10. PULMICORT FLEXHALER [Suspect]
     Active Substance: BUDESONIDE
     Indication: ASTHMA
     Route: 055

REACTIONS (10)
  - Off label use [Unknown]
  - Intentional product misuse [Unknown]
  - Chest discomfort [Unknown]
  - Oropharyngitis fungal [Unknown]
  - Blood glucose increased [Unknown]
  - Asthma [Unknown]
  - Oesophageal disorder [Unknown]
  - Abnormal loss of weight [Not Recovered/Not Resolved]
  - Drug ineffective [Unknown]
  - Diabetes mellitus [Unknown]
